FAERS Safety Report 4757511-9 (Version None)
Quarter: 2005Q3

REPORT INFORMATION
  Report Type: 
  Country: None (occurrence: None)
  Receive Date: 20050829
  Receipt Date: 20050815
  Transmission Date: 20060218
  Serious: Yes (Disabling, Other)
  Sender: FDA-Public Use
  Company Number: 2005092923

PATIENT
  Sex: Male

DRUGS (2)
  1. VIAGRA [Suspect]
     Indication: ERECTILE DYSFUNCTION
     Dosage: 50 MG (50 MG, AS NECESSARY), ORAL
     Route: 048
     Dates: start: 20011126
  2. ACETYLSALICYLIC ACID SRT [Concomitant]

REACTIONS (5)
  - BLINDNESS UNILATERAL [None]
  - LOW DENSITY LIPOPROTEIN INCREASED [None]
  - OPTIC NERVE SHEATH HAEMORRHAGE [None]
  - TRANSIENT ISCHAEMIC ATTACK [None]
  - VISUAL DISTURBANCE [None]
